FAERS Safety Report 7135399-9 (Version None)
Quarter: 2010Q4

REPORT INFORMATION
  Report Type: 
  Country: None (occurrence: None)
  Receive Date: 20101203
  Receipt Date: 20101118
  Transmission Date: 20110411
  Serious: Yes (Other)
  Sender: FDA-Public Use
  Company Number: CH-ELI_LILLY_AND_COMPANY-CH201010002386

PATIENT
  Age: 85 Year
  Sex: Female
  Weight: 59 kg

DRUGS (9)
  1. FORTEO [Suspect]
     Indication: OSTEOPOROSIS
     Dosage: 20 UG, DAILY (1/D)
     Route: 058
     Dates: start: 20100721, end: 20100928
  2. FORTEO [Suspect]
     Dosage: 20 UG, DAILY (1/D)
     Route: 058
     Dates: start: 20101101
  3. CALCIMAGON-D 3 [Concomitant]
     Indication: OSTEOPOROSIS
     Dosage: 1 D/F, DAILY (1/D)
     Route: 048
     Dates: start: 20011001
  4. VITAMIN D [Concomitant]
     Indication: OSTEOPOROSIS
     Dosage: 600 IU, DAILY (1/D)
     Route: 048
     Dates: start: 20061201
  5. ASPIRIN [Concomitant]
     Dosage: 300 MG, DAILY (1/D)
     Route: 048
     Dates: start: 20010101
  6. TORASEMID [Concomitant]
     Dosage: 5 MG, DAILY (1/D)
     Route: 048
  7. TORASEMID [Concomitant]
     Dosage: 20 MG, DAILY (1/D)
     Route: 048
     Dates: start: 20101005
  8. FLAMON [Concomitant]
     Dosage: 240 MG, UNK
  9. EICOSAPEN [Concomitant]

REACTIONS (7)
  - CARDIAC VALVE DISEASE [None]
  - CHEST DISCOMFORT [None]
  - DIZZINESS [None]
  - HEADACHE [None]
  - HYPERTENSION [None]
  - LEFT VENTRICULAR HYPERTROPHY [None]
  - OEDEMA PERIPHERAL [None]
